FAERS Safety Report 15121951 (Version 3)
Quarter: 2018Q4

REPORT INFORMATION
  Report Type: Report from Study
  Country: DE (occurrence: DE)
  Receive Date: 20180709
  Receipt Date: 20181031
  Transmission Date: 20190204
  Serious: Yes (Hospitalization)
  Sender: FDA-Public Use
  Company Number: DE-BAYER-2018-123647

PATIENT
  Age: 53 Year
  Sex: Female

DRUGS (2)
  1. BETAFERON [Suspect]
     Active Substance: INTERFERON BETA-1B
     Indication: MULTIPLE SCLEROSIS
     Dosage: 250 ?G, QOD
     Route: 058
     Dates: start: 20170201, end: 20180701
  2. BETAFERON [Suspect]
     Active Substance: INTERFERON BETA-1B
     Indication: MULTIPLE SCLEROSIS
     Dosage: UNK - OTHER INTAKE DOSAGE VAL.
     Route: 058
     Dates: start: 20170201, end: 201806

REACTIONS (5)
  - Heart rate increased [Not Recovered/Not Resolved]
  - Cardiovascular disorder [Not Recovered/Not Resolved]
  - Dyspnoea [Not Recovered/Not Resolved]
  - Tachycardia [Unknown]
  - Fatigue [Unknown]

NARRATIVE: CASE EVENT DATE: 20180525
